FAERS Safety Report 9474550 (Version 3)
Quarter: 2013Q3

REPORT INFORMATION
  Report Type: Spontaneous
  Country: US (occurrence: US)
  Receive Date: 20130823
  Receipt Date: 20130912
  Transmission Date: 20140515
  Serious: Yes (Hospitalization)
  Sender: FDA-Public Use
  Company Number: US-INCYTE CORPORATION-2013IN001586

PATIENT
  Age: 59 Year
  Sex: Male

DRUGS (10)
  1. JAKAFI [Suspect]
     Indication: LEUKAEMIA
     Dosage: 15 MG, BID
     Route: 048
     Dates: start: 201306, end: 201308
  2. JAKAFI [Suspect]
     Indication: MYELOFIBROSIS
  3. ALLOPURINOL [Concomitant]
  4. MULTAQ [Concomitant]
  5. KLOR-CON [Concomitant]
  6. DIGOXIN [Concomitant]
  7. METOPROLOL [Concomitant]
  8. BUMETANIDE [Concomitant]
  9. TAMSULOSIN [Concomitant]
  10. PREDNISONE [Concomitant]

REACTIONS (6)
  - Myocardial infarction [Unknown]
  - Bronchitis [Unknown]
  - Transfusion [Unknown]
  - Rash [Unknown]
  - Platelet count decreased [Unknown]
  - Headache [Unknown]
